FAERS Safety Report 8570520 (Version 2)
Quarter: 2012Q4

REPORT INFORMATION
  Report Type: 
  Country: CA (occurrence: CA)
  Receive Date: 20120521
  Receipt Date: 20120829
  Transmission Date: 20130627
  Serious: Yes (Other)
  Sender: FDA-Public Use
  Company Number: CA-SANOFI-AVENTIS-2012SA034865

PATIENT
  Age: 74 Year
  Sex: Male

DRUGS (36)
  1. KETODERM [Concomitant]
     Dosage: local application to affcted area
     Dates: start: 20101229
  2. CALCIUM [Concomitant]
     Dosage: morning and night
     Dates: start: 20100301, end: 20110205
  3. VITAMIN D [Concomitant]
     Dates: start: 20100301, end: 20110205
  4. ZOVIRAX [Concomitant]
     Dosage: apply to afftected area 4-6 times a day
     Dates: start: 20101126
  5. GLUCAGON [Concomitant]
     Dosage: as directed by doctor
     Dates: start: 20101101
  6. OMEPRAZOLE [Concomitant]
     Dosage: 1 cap once daily in rmoning 30 minutes before breakfast.
     Dates: start: 20100827, end: 20110630
  7. MUPIROCIN [Concomitant]
     Indication: ANTIBIOTIC THERAPY
     Dates: start: 20101229
  8. XATRAL [Suspect]
     Indication: URINARY TRACT DISORDER
     Route: 048
     Dates: end: 20120515
  9. XATRAL [Suspect]
     Indication: PROSTATIC HYPERTROPHY
     Route: 048
     Dates: end: 20120515
  10. LANTUS [Suspect]
     Indication: TYPE 2 DIABETES MELLITUS
     Dosage: Dose- 36 IU in the morning and 40 IU at bedtime
     Route: 058
  11. LANTUS [Suspect]
     Indication: TYPE 2 DIABETES MELLITUS
     Dosage: Dose- 36 IU in the morning and 40 IU at bedtime;form: cartridge
     Route: 058
     Dates: start: 20100630, end: 20110630
  12. ALTACE [Suspect]
     Indication: HYPERTENSION
     Route: 048
  13. ALTACE [Suspect]
     Indication: HYPERTENSION
     Route: 048
     Dates: start: 20100827, end: 20110630
  14. AVALIDE [Suspect]
     Indication: HYPERTENSION
     Dosage: Dose-hydrochlorothiazide/irbesartan at a dose of 12.5/300 mg
     Route: 048
  15. AVALIDE [Suspect]
     Indication: HYPERTENSION
     Dosage: Dose-hydrochlorothiazide/irbesartan at a dose of 12.5/300 mg
     Route: 048
     Dates: start: 20100827, end: 20110630
  16. TESTIM [Suspect]
     Indication: HORMONE REPLACEMENT THERAPY
     Route: 061
     Dates: start: 201107, end: 20111212
  17. NOVORAPID [Concomitant]
     Indication: DIABETES
     Dosage: 12IU breakfast, 6 IU lunch. 10 IU supper
     Route: 058
     Dates: start: 2007
  18. NOVORAPID [Concomitant]
     Indication: DIABETES
     Dosage: 12IU in moning, 6 IU at lunch and 6 IU at supper
     Route: 058
     Dates: start: 20080827, end: 20110630
  19. AVODART [Concomitant]
     Indication: URINARY TRACT DISORDER
     Route: 048
     Dates: start: 2008
  20. AVODART [Concomitant]
     Indication: URINARY TRACT DISORDER
     Route: 048
     Dates: start: 20101029
  21. ATENOLOL [Concomitant]
     Indication: HYPERTENSION
     Route: 048
     Dates: start: 2009
  22. ATENOLOL [Concomitant]
     Indication: HYPERTENSION
     Dates: start: 20110630, end: 20110630
  23. CLONIDINE [Concomitant]
     Indication: HYPERTENSION
     Route: 048
     Dates: start: 2009
  24. CLONIDINE [Concomitant]
     Indication: HYPERTENSION
     Dosage: 1 tab twice daily morning and night
     Dates: start: 20100827, end: 20110630
  25. AMLODIPINE [Concomitant]
     Indication: BLOOD PRESSURE
     Route: 048
     Dates: start: 2009
  26. AMLODIPINE [Concomitant]
     Indication: BLOOD PRESSURE
     Dates: start: 20100827, end: 20110630
  27. CELEBREX [Concomitant]
     Dosage: once daily at bedtime if needed
     Dates: start: 20101202
  28. DIPROSONE [Concomitant]
     Dosage: local application
     Dates: start: 20101229
  29. VENTOLIN /00139501/ [Concomitant]
     Indication: COUGH
     Dosage: take 1-2 inhalations by mouth 4 times a day if needed for- max 8 inhalations
     Dates: start: 20101029, end: 20110430
  30. VENTOLIN /00139501/ [Concomitant]
     Indication: WHEEZING
     Dosage: take 1-2 inhalations by mouth 4 times a day if needed for- max 8 inhalations
     Dates: start: 20101029, end: 20110430
  31. ADVAIR DISKUS [Concomitant]
     Dosage: take 1 inhalation by mouth twice daily morning and night rinse mouth after use.
     Dates: start: 20101229, end: 20110430
  32. ALENDRONATE [Concomitant]
     Dosage: take 1 tab once a week same day each week, 30 minutes before breakfast.
     Dates: start: 20101029
  33. UREMOL HC [Concomitant]
     Dosage: apply once daily at bedtime
     Dates: start: 20100828
  34. METFORMIN [Concomitant]
     Dosage: mornig-2tabs, lunch 1 tab, supper 2 tabs
     Dates: start: 20100827, end: 20110630
  35. ASAPHEN [Concomitant]
     Dosage: every second day
     Dates: start: 20100827, end: 20110630
  36. SIMVASTATIN [Concomitant]
     Dosage: daily at bedtime
     Dates: start: 20100827, end: 20110630

REACTIONS (2)
  - Prostate cancer [Not Recovered/Not Resolved]
  - Drug administration error [Unknown]
